FAERS Safety Report 4997538-5 (Version None)
Quarter: 2006Q2

REPORT INFORMATION
  Report Type: 
  Country: None (occurrence: None)
  Receive Date: 20060509
  Receipt Date: 20060216
  Transmission Date: 20061013
  Serious: Yes (Life-Threatening, Hospitalization, Disabling)
  Sender: FDA-Public Use
  Company Number: US-MERCK-0602USA04604

PATIENT
  Age: 71 Year
  Sex: Male
  Weight: 56 kg

DRUGS (14)
  1. ZOCOR [Suspect]
     Indication: HYPERLIPIDAEMIA
     Route: 048
     Dates: start: 20051228, end: 20060206
  2. ZOCOR [Suspect]
     Route: 048
     Dates: end: 20051227
  3. ALLOPURINOL [Concomitant]
     Route: 065
  4. ZANTAC [Concomitant]
     Route: 065
  5. ASPIRIN [Concomitant]
     Route: 065
  6. PLAVIX [Concomitant]
     Route: 065
  7. LASIX [Concomitant]
     Route: 065
  8. PRINIVIL [Concomitant]
     Route: 048
  9. SPIRONOLACTONE [Concomitant]
     Route: 065
  10. PHYTONADIONE [Concomitant]
     Route: 065
  11. COLESTID [Concomitant]
     Route: 065
  12. VITAMINS (UNSPECIFIED) [Concomitant]
     Route: 065
  13. NITRO-BID [Concomitant]
     Route: 065
  14. COREG [Concomitant]
     Route: 065

REACTIONS (9)
  - ASTHENIA [None]
  - BLOOD CREATINE PHOSPHOKINASE INCREASED [None]
  - ERYTHEMA [None]
  - FATIGUE [None]
  - MUSCULOSKELETAL STIFFNESS [None]
  - MYALGIA [None]
  - RALES [None]
  - RHABDOMYOLYSIS [None]
  - SHOULDER PAIN [None]
